FAERS Safety Report 4398355-X (Version None)
Quarter: 2004Q3

REPORT INFORMATION
  Report Type: 
  Country: None (occurrence: None)
  Receive Date: 20040714
  Receipt Date: 20040714
  Transmission Date: 20050211
  Serious: Yes (Life-Threatening, Hospitalization)
  Sender: FDA-Public Use
  Company Number: None

PATIENT
  Age: 40 Year
  Sex: Female
  Weight: 99.7913 kg

DRUGS (8)
  1. WARFARIN SODIUM [Suspect]
     Indication: DEEP VEIN THROMBOSIS
     Dosage: 7.5 MG PO DAILY CHRONIC
     Route: 048
  2. ASPIRIN [Suspect]
     Indication: HEADACHE
  3. PERCOCET [Concomitant]
  4. METHADONE HCL [Concomitant]
  5. ZOLOFT [Concomitant]
  6. PROZAC [Concomitant]
  7. TRAMADOL [Concomitant]
  8. IRON PILL [Concomitant]

REACTIONS (3)
  - GASTROINTESTINAL HAEMORRHAGE [None]
  - HEADACHE [None]
  - ULCER [None]
